FAERS Safety Report 12949507 (Version 1)
Quarter: 2016Q4

REPORT INFORMATION
  Report Type: Spontaneous
  Country: US (occurrence: US)
  Receive Date: 20161116
  Receipt Date: 20161116
  Transmission Date: 20170207
  Serious: No
  Sender: FDA-Public Use
  Company Number: US-PFIZER INC-2016526638

PATIENT
  Age: 43 Year
  Sex: Male

DRUGS (12)
  1. FISH OIL [Concomitant]
     Active Substance: FISH OIL
     Indication: CARDIAC DISORDER
     Dosage: 600 MG, 1X/DAY
  2. ZINC [Concomitant]
     Active Substance: ZINC\ZINC CHLORIDE
     Indication: NERVE INJURY
     Dosage: 50 MG, 1X/DAY
     Dates: start: 1980
  3. CAVERJECT [Suspect]
     Active Substance: ALPROSTADIL
     Indication: ERECTILE DYSFUNCTION
     Dosage: 10 UG, 2X/WEEK
     Dates: start: 2007, end: 2007
  4. MAGNESIUM CITRATE. [Concomitant]
     Active Substance: MAGNESIUM CITRATE
     Indication: NERVE INJURY
     Dosage: 200 MG, 1X/DAY
     Dates: start: 1980
  5. CALCIUM PLUS VITAMIN D3 [Concomitant]
     Indication: BONE DISORDER
     Dosage: UNK UNK, 1X/DAY [CALCIUM: 600MG/VITAMIN D3: 800 IU]
  6. BIOTIN [Concomitant]
     Active Substance: BIOTIN
     Indication: ROUTINE HEALTH MAINTENANCE
     Dosage: 1000 UG, 1X/DAY
     Dates: start: 1980
  7. PROGRAF [Concomitant]
     Active Substance: TACROLIMUS\TACROLIMUS ANHYDROUS
     Indication: PANCREAS TRANSPLANT
     Dosage: 1 MG, 2X/DAY
     Route: 048
     Dates: start: 2005
  8. VITAMIN B12 [Concomitant]
     Active Substance: CYANOCOBALAMIN
     Indication: ROUTINE HEALTH MAINTENANCE
     Dosage: 400 IU, 1X/DAY (IN THE MORNING)
     Dates: start: 1980
  9. FOLIC ACID. [Concomitant]
     Active Substance: FOLIC ACID
     Indication: ROUTINE HEALTH MAINTENANCE
     Dosage: 800 UG, DAILY
  10. KOREAN GINSENG [Concomitant]
     Indication: MEMORY IMPAIRMENT
     Dosage: 500 MG, 1X/DAY
     Dates: start: 1980
  11. GLUCOSAMINE [Concomitant]
     Active Substance: GLUCOSAMINE
     Indication: ARTHROPATHY
     Dosage: 2000 MG, 1X/DAY
  12. BILOBAN [Concomitant]
     Indication: MEMORY IMPAIRMENT
     Dosage: 500 MG, 1X/DAY
     Dates: start: 1980

REACTIONS (2)
  - Blood pressure decreased [Recovered/Resolved]
  - Injection site pain [Recovered/Resolved]

NARRATIVE: CASE EVENT DATE: 2007
